FAERS Safety Report 20827398 (Version 1)
Quarter: 2022Q2

REPORT INFORMATION
  Report Type: Spontaneous
  Country: JP (occurrence: JP)
  Receive Date: 20220513
  Receipt Date: 20220513
  Transmission Date: 20220720
  Serious: Yes (Other)
  Sender: FDA-Public Use
  Company Number: JP-MSD-2204JPN002398J

PATIENT
  Age: 8 Decade
  Sex: Female

DRUGS (3)
  1. ZOLINZA [Suspect]
     Active Substance: VORINOSTAT
     Indication: Cutaneous T-cell lymphoma
     Dosage: 400 MILLIGRAM, QD
     Route: 065
     Dates: start: 20220324
  2. ZOLINZA [Suspect]
     Active Substance: VORINOSTAT
     Dosage: 300 MILLIGRAM, QD
     Route: 065
     Dates: start: 202204
  3. MIYA-BM [Concomitant]
     Active Substance: CLOSTRIDIUM BUTYRICUM SPORES STRAIN M-55
     Dosage: UNK
     Route: 065

REACTIONS (1)
  - Neuropathy peripheral [Unknown]

NARRATIVE: CASE EVENT DATE: 20220420
